FAERS Safety Report 8215533-X (Version None)
Quarter: 2012Q1

REPORT INFORMATION
  Report Type: 
  Country: None (occurrence: None)
  Receive Date: 20120316
  Receipt Date: 20120307
  Transmission Date: 20120608
  Serious: Yes (Hospitalization, Other)
  Sender: FDA-Public Use
  Company Number: US-B.I. PHARMACEUTICALS,INC./RIDGEFIELD-2012-BP-02530BP

PATIENT
  Sex: Female

DRUGS (16)
  1. TRADJENTA [Suspect]
     Indication: TYPE 2 DIABETES MELLITUS
     Dates: start: 20120120, end: 20120130
  2. TRADJENTA [Suspect]
     Indication: RENAL FAILURE CHRONIC
  3. BUMEX [Concomitant]
  4. FISH OIL [Concomitant]
  5. METOPROLOL SUCCINATE [Concomitant]
  6. SPIRONOLACTONE [Concomitant]
  7. VITAMIN D [Concomitant]
  8. PRILOSEC [Concomitant]
  9. GARLIC [Concomitant]
  10. ZETIA [Concomitant]
  11. CALCIUM [Concomitant]
  12. RED YEAST RICE [Concomitant]
  13. SYNTHROID [Concomitant]
  14. ACTOS [Concomitant]
  15. ASPIRIN [Concomitant]
  16. CENTRUM [Concomitant]

REACTIONS (2)
  - RENAL FAILURE ACUTE [None]
  - PANCREATITIS [None]
